FAERS Safety Report 10252113 (Version 1)
Quarter: 2014Q2

REPORT INFORMATION
  Report Type: Spontaneous
  Country: US (occurrence: US)
  Receive Date: 20140623
  Receipt Date: 20140623
  Transmission Date: 20141212
  Serious: Yes (Other)
  Sender: FDA-Public Use
  Company Number: US-AMGEN-USASP2014046542

PATIENT
  Age: 68 Year
  Sex: Male

DRUGS (1)
  1. ENBREL [Suspect]
     Indication: RHEUMATOID ARTHRITIS
     Dosage: 25 MG, QWK
     Route: 065
     Dates: start: 20010620, end: 201403

REACTIONS (5)
  - Leukaemia [Unknown]
  - Muscle spasms [Unknown]
  - Mass [Unknown]
  - Muscle twitching [Unknown]
  - Back pain [Not Recovered/Not Resolved]
